FAERS Safety Report 23297059 (Version 2)
Quarter: 2023Q4

REPORT INFORMATION
  Report Type: Spontaneous
  Country: CO (occurrence: CO)
  Receive Date: 20231214
  Receipt Date: 20231219
  Transmission Date: 20240109
  Serious: Yes (Life-Threatening)
  Sender: FDA-Public Use
  Company Number: CO-PFIZER INC-PV202300201827

PATIENT

DRUGS (1)
  1. PALBOCICLIB [Suspect]
     Active Substance: PALBOCICLIB
     Dosage: UNK, DAILY
     Route: 048
     Dates: start: 20230517, end: 20231119

REACTIONS (2)
  - Terminal state [Unknown]
  - Illness [Unknown]
